FAERS Safety Report 25237460 (Version 1)
Quarter: 2025Q2

REPORT INFORMATION
  Report Type: Spontaneous
  Country: PL (occurrence: PL)
  Receive Date: 20250425
  Receipt Date: 20250425
  Transmission Date: 20250717
  Serious: Yes (Life-Threatening, Other)
  Sender: Kenvue
  Company Number: PL-URPL-DML-MLP.4401.1.785.2022

PATIENT

DRUGS (2)
  1. ACETAMINOPHEN [Suspect]
     Active Substance: ACETAMINOPHEN
     Indication: Product used for unknown indication
     Route: 048
     Dates: start: 20220217, end: 20220217
  2. CLONAZEPAM [Suspect]
     Active Substance: CLONAZEPAM
     Indication: Product used for unknown indication
     Route: 048
     Dates: start: 20220217, end: 20220217

REACTIONS (3)
  - Somnolence [Recovering/Resolving]
  - Suicide attempt [Recovering/Resolving]
  - Toxicity to various agents [Recovering/Resolving]
